FAERS Safety Report 8510833-8 (Version None)
Quarter: 2012Q3

REPORT INFORMATION
  Report Type: 
  Country: None (occurrence: None)
  Receive Date: 20120716
  Receipt Date: 20120702
  Transmission Date: 20120928
  Serious: Yes (Life-Threatening, Hospitalization, Other)
  Sender: FDA-Public Use
  Company Number: DE-RANBAXY-2012RR-57706

PATIENT
  Age: 38 Year
  Sex: Female

DRUGS (1)
  1. CIPROFLOXACIN [Suspect]
     Indication: PRODUCT USED FOR UNKNOWN INDICATION
     Dosage: 250 MG, BID (1-0-1)
     Route: 048
     Dates: start: 20060829, end: 20060902

REACTIONS (5)
  - NEUROLOGICAL DECOMPENSATION [None]
  - JAUNDICE [None]
  - CHROMATURIA [None]
  - HEPATIC ENCEPHALOPATHY [None]
  - LIVER DISORDER [None]
